FAERS Safety Report 10066921 (Version 2)
Quarter: 2014Q2

REPORT INFORMATION
  Report Type: Report from Study
  Country: CA (occurrence: CA)
  Receive Date: 20140409
  Receipt Date: 20140409
  Transmission Date: 20141212
  Serious: Yes (Hospitalization)
  Sender: FDA-Public Use
  Company Number: CA-ROCHE-734728

PATIENT
  Age: 69 Year
  Sex: Female
  Weight: 73 kg

DRUGS (13)
  1. TOCILIZUMAB [Suspect]
     Indication: RHEUMATOID ARTHRITIS
     Dosage: FORM: LIQUID, LAST DOSE; 14 SEP 2010
     Route: 042
     Dates: start: 20060309
  2. TOCILIZUMAB [Suspect]
     Indication: RHEUMATOID ARTHRITIS
     Dosage: PATIENT WAS PREVIOUSLY ENROLLED IN THE BLINDED STUDY WA17822
     Route: 042
  3. ASA [Concomitant]
     Route: 065
  4. ASA [Concomitant]
     Route: 065
  5. SYNTHROID [Concomitant]
     Route: 065
  6. SYNTHROID [Concomitant]
     Route: 065
  7. TENORMIN [Concomitant]
     Route: 065
  8. NEXIUM [Concomitant]
     Route: 065
     Dates: start: 20060515, end: 20100921
  9. EFFEXOR [Concomitant]
     Route: 065
  10. FOLIC ACID [Concomitant]
     Route: 065
  11. TYLENOL [Concomitant]
     Dosage: FREQUENCY: PRN
     Route: 065
  12. ATENOLOL [Concomitant]
     Route: 065
     Dates: start: 2005, end: 20100922
  13. METHOTREXATE [Concomitant]
     Dosage: METHOTREXATE 25 MG/ML
     Route: 058
     Dates: start: 20060723

REACTIONS (1)
  - Arteriosclerosis coronary artery [Recovered/Resolved]
